FAERS Safety Report 20333740 (Version 1)
Quarter: 2022Q1

REPORT INFORMATION
  Report Type: Spontaneous
  Country: US (occurrence: US)
  Receive Date: 20220113
  Receipt Date: 20220113
  Transmission Date: 20220424
  Serious: No
  Sender: FDA-Public Use
  Company Number: US-LANNETT COMPANY, INC.-US-2021LAN000101

PATIENT
  Age: 75 Year
  Sex: Female

DRUGS (1)
  1. TRIAMTERENE AND HYDROCHLOROTHIAZIDE [Suspect]
     Active Substance: HYDROCHLOROTHIAZIDE\TRIAMTERENE
     Indication: Hypertension
     Dosage: 1 CAPSULE, ORALLY, ONCE DAILY
     Route: 048

REACTIONS (2)
  - Blood pressure increased [Unknown]
  - Product physical issue [Unknown]

NARRATIVE: CASE EVENT DATE: 20210301
